FAERS Safety Report 8175553-0 (Version None)
Quarter: 2012Q1

REPORT INFORMATION
  Report Type: 
  Country: None (occurrence: None)
  Receive Date: 20120301
  Receipt Date: 20120222
  Transmission Date: 20120608
  Serious: Yes (Death)
  Sender: FDA-Public Use
  Company Number: JP-BRISTOL-MYERS SQUIBB COMPANY-16417933

PATIENT
  Age: 75 Year
  Sex: Male

DRUGS (3)
  1. IRBESARTAN [Suspect]
     Route: 048
  2. CRESTOR [Suspect]
     Indication: HYPERLIPIDAEMIA
     Route: 048
     Dates: start: 20110401, end: 20120212
  3. PLAVIX [Concomitant]
     Route: 048

REACTIONS (1)
  - RHABDOMYOLYSIS [None]
